FAERS Safety Report 17154810 (Version 3)
Quarter: 2020Q1

REPORT INFORMATION
  Report Type: Report from Study
  Country: US (occurrence: US)
  Receive Date: 20191214
  Receipt Date: 20200107
  Transmission Date: 20200409
  Serious: No
  Sender: FDA-Public Use
  Company Number: NVSC2019US025420

PATIENT
  Sex: Female

DRUGS (1)
  1. COSENTYX [Suspect]
     Active Substance: SECUKINUMAB
     Indication: PSORIATIC ARTHROPATHY
     Dosage: 150 MG, QW (BENEATH THE SKIN, USUALLY VIA NJECTION)
     Route: 058
     Dates: start: 20191001

REACTIONS (3)
  - Injection site bruising [Recovering/Resolving]
  - Drug ineffective [Recovering/Resolving]
  - Injection site pain [Recovering/Resolving]
